FAERS Safety Report 6358389-2 (Version None)
Quarter: 2009Q3

REPORT INFORMATION
  Report Type: 
  Country: None (occurrence: None)
  Receive Date: 20090916
  Receipt Date: 20090910
  Transmission Date: 20100115
  Serious: Yes (Hospitalization)
  Sender: FDA-Public Use
  Company Number: HU-AMGEN-QUU362488

PATIENT
  Sex: Female

DRUGS (3)
  1. ARANESP [Suspect]
     Indication: ANAEMIA OF MALIGNANT DISEASE
     Dates: start: 20090201, end: 20090803
  2. NEULASTA [Suspect]
     Indication: CHEMOTHERAPY
     Dates: start: 20090223, end: 20090803
  3. UNSPECIFIED ANTINEOPLASTIC AGENT [Concomitant]

REACTIONS (3)
  - ASCITES [None]
  - DEEP VEIN THROMBOSIS [None]
  - PLATELET COUNT INCREASED [None]
